FAERS Safety Report 24844678 (Version 1)
Quarter: 2025Q1

REPORT INFORMATION
  Report Type: Spontaneous
  Country: US (occurrence: US)
  Receive Date: 20250115
  Receipt Date: 20250115
  Transmission Date: 20250409
  Serious: No
  Sender: DR REDDYS
  Company Number: None

PATIENT
  Age: 59 Year
  Sex: Female

DRUGS (2)
  1. OLANZAPINE [Suspect]
     Active Substance: OLANZAPINE
     Indication: Psychotic symptom
     Dosage: NIGHTLY
     Dates: start: 2023
  2. DEFERIPRONE [Concomitant]
     Active Substance: DEFERIPRONE
     Indication: Product used for unknown indication

REACTIONS (3)
  - Bradykinesia [Unknown]
  - Muscle rigidity [Unknown]
  - Parkinsonian gait [Unknown]

NARRATIVE: CASE EVENT DATE: 20230101
